FAERS Safety Report 7578544-3 (Version None)
Quarter: 2011Q2

REPORT INFORMATION
  Report Type: 
  Country: None (occurrence: None)
  Receive Date: 20110628
  Receipt Date: 20110621
  Transmission Date: 20111010
  Serious: Yes (Other)
  Sender: FDA-Public Use
  Company Number: PH-JNJFOC-20110610908

PATIENT

DRUGS (2)
  1. DORIBAX [Suspect]
     Indication: ABDOMINAL INFECTION
     Route: 041
  2. DORIBAX [Suspect]
     Indication: DIABETIC FOOT
     Route: 041

REACTIONS (1)
  - PSEUDOMONAS INFECTION [None]
